FAERS Safety Report 4385550-9 (Version None)
Quarter: 2004Q2

REPORT INFORMATION
  Report Type: 
  Country: None (occurrence: None)
  Receive Date: 20040622
  Receipt Date: 20031006
  Transmission Date: 20050107
  Serious: Yes (Death, Life-Threatening, Hospitalization)
  Sender: FDA-Public Use
  Company Number: F0200300111

PATIENT
  Age: 72 Year
  Sex: Male

DRUGS (9)
  1. XATRAL             (ALFUZOSIN) [Suspect]
     Indication: BENIGN PROSTATIC HYPERPLASIA
     Dosage: 10 MG, OD ORAL
     Route: 048
     Dates: start: 20010210, end: 20030812
  2. VASTAREL (TRIMETAZIDINE HYDROCHLORIDE) [Concomitant]
  3. PLAVIX [Concomitant]
  4. PRAVASTATIN SODIUM [Concomitant]
  5. AMLODIPINE BESYLATE [Concomitant]
  6. ALLOPURINOL [Concomitant]
  7. FLUOXETINE [Concomitant]
  8. OMEPRAZOLE [Concomitant]
  9. SUBRONC (AMBROXOL HYDROCHLORIDE) [Concomitant]

REACTIONS (8)
  - APHASIA [None]
  - BRAIN NEOPLASM [None]
  - COGNITIVE DISORDER [None]
  - GENERAL PHYSICAL HEALTH DETERIORATION [None]
  - HEMIPARESIS [None]
  - LUNG CANCER METASTATIC [None]
  - METASTASES TO CENTRAL NERVOUS SYSTEM [None]
  - MUSCULAR WEAKNESS [None]
